FAERS Safety Report 9906305 (Version 3)
Quarter: 2014Q1

REPORT INFORMATION
  Report Type: Report from Study
  Country: JP (occurrence: JP)
  Receive Date: 20140218
  Receipt Date: 20140307
  Transmission Date: 20141002
  Serious: Yes (Death)
  Sender: FDA-Public Use
  Company Number: JP-UCBSA-113024

PATIENT
  Age: 84 Year
  Sex: Female

DRUGS (4)
  1. NEUPRO [Suspect]
     Indication: PARKINSON^S DISEASE
     Dosage: ROUTE: TOPICAL ODT; 2 MG/24 HR
     Route: 061
     Dates: start: 20140115, end: 20140121
  2. NEUPRO [Suspect]
     Indication: PARKINSON^S DISEASE
     Dosage: 4 MG/24 HR
     Route: 061
     Dates: start: 20140122, end: 20140201
  3. LEVODOPA [Concomitant]
     Dosage: 100 MG DAILY
     Dates: start: 20140107, end: 20140131
  4. APOMORPHINE HYDROCHLORIDE HYDRATE [Concomitant]
     Dosage: 6 MG DAILY
     Dates: start: 20140122, end: 20140123

REACTIONS (1)
  - Respiratory failure [Fatal]
